FAERS Safety Report 5928570-2 (Version None)
Quarter: 2008Q4

REPORT INFORMATION
  Report Type: 
  Country: None (occurrence: None)
  Receive Date: 20081023
  Receipt Date: 20081013
  Transmission Date: 20090506
  Serious: Yes (Hospitalization)
  Sender: FDA-Public Use
  Company Number: FR-ABBOTT-08P-056-0481427-00

PATIENT
  Sex: Male

DRUGS (6)
  1. DEPAKOTE [Suspect]
     Indication: MOOD ALTERED
     Route: 048
     Dates: start: 20080903
  2. DEPAKOTE [Suspect]
     Route: 048
     Dates: start: 20080901, end: 20080908
  3. MEPROBAMATE [Suspect]
     Indication: AGITATION
     Route: 048
     Dates: end: 20080908
  4. RISPERIDONE [Suspect]
     Indication: AGITATION
     Route: 048
     Dates: end: 20080908
  5. CLONAZEPAM [Suspect]
     Indication: AGITATION
     Route: 048
     Dates: end: 20080908
  6. VENLAFAXINE HCL [Suspect]
     Indication: DEPRESSION
     Route: 048
     Dates: end: 20080908

REACTIONS (2)
  - PSYCHOMOTOR RETARDATION [None]
  - SOMNOLENCE [None]
